FAERS Safety Report 4444718-3 (Version None)
Quarter: 2004Q3

REPORT INFORMATION
  Report Type: 
  Country: None (occurrence: None)
  Receive Date: 20040902
  Receipt Date: 20040819
  Transmission Date: 20050211
  Serious: Yes (Other)
  Sender: FDA-Public Use
  Company Number: 1781-070

PATIENT

DRUGS (1)
  1. METHYLENE BLUE INJECTION, USP 1% [Suspect]
     Dosage: 80MG INTO SUBARACHNOID
     Dates: start: 20031001

REACTIONS (7)
  - ARACHNOIDITIS [None]
  - BLADDER DISORDER [None]
  - HYPOAESTHESIA [None]
  - MEDICATION ERROR [None]
  - OFF LABEL USE [None]
  - POST PROCEDURAL PAIN [None]
  - TACHYCARDIA [None]
